FAERS Safety Report 18011676 (Version 2)
Quarter: 2020Q4

REPORT INFORMATION
  Report Type: Spontaneous
  Country: US (occurrence: US)
  Receive Date: 20200713
  Receipt Date: 20201007
  Transmission Date: 20210113
  Serious: Yes (Hospitalization)
  Sender: FDA-Public Use
  Company Number: US-JNJFOC-20200706171

PATIENT
  Age: 11 Month
  Sex: Female
  Weight: 8.53 kg

DRUGS (1)
  1. LIDOCAINE HYDROCHLORIDE. [Suspect]
     Active Substance: LIDOCAINE HYDROCHLORIDE
     Indication: DERMATITIS DIAPER
     Dosage: APPLIED COPIOUSLY MULTIPLE TIMES DURING THAT DAY
     Route: 061

REACTIONS (5)
  - Toxicity to various agents [Recovering/Resolving]
  - Status epilepticus [Recovered/Resolved]
  - Product use in unapproved indication [Recovered/Resolved]
  - White blood cell count increased [Unknown]
  - Off label use [Unknown]
